FAERS Safety Report 9614245 (Version 2)
Quarter: 2013Q4

REPORT INFORMATION
  Report Type: Spontaneous
  Country: DK (occurrence: DK)
  Receive Date: 20131011
  Receipt Date: 20131011
  Transmission Date: 20140711
  Serious: Yes (Hospitalization)
  Sender: FDA-Public Use
  Company Number: DK-BRISTOL-MYERS SQUIBB COMPANY-19218353

PATIENT
  Age: 69 Year
  Sex: Male

DRUGS (1)
  1. IPILIMUMAB [Suspect]
     Indication: MALIGNANT MELANOMA
     Dosage: INJ.3MG/KG JAN 2013 TO APR 2013.
     Route: 042
     Dates: start: 20130123, end: 20130327

REACTIONS (2)
  - Diarrhoea [Unknown]
  - Clostridial infection [Unknown]
